FAERS Safety Report 8923370 (Version 1)
Quarter: 2012Q4

REPORT INFORMATION
  Report Type: 
  Country: US (occurrence: US)
  Receive Date: 20121123
  Receipt Date: 20121123
  Transmission Date: 20130627
  Serious: Yes (Other)
  Sender: FDA-Public Use
  Company Number: US-BAYER-2012-120020

PATIENT
  Age: 29 Year
  Sex: Male

DRUGS (4)
  1. ALEVE CAPLET/TABLET,MIDOL EXTENDED RELIEF CAPLET [Suspect]
     Indication: HEADACHE
     Dosage: UNK
     Dates: end: 201204
  2. REBIF [Suspect]
     Indication: MULTIPLE SCLEROSIS
     Dosage: 3 IN 1 WEEK
     Route: 058
     Dates: start: 20110311, end: 201204
  3. TYLENOL [Suspect]
     Indication: HEADACHE
     Dosage: UNK
     Dates: end: 201204
  4. IBUPROFEN [Suspect]
     Indication: HEADACHE
     Dosage: UNK
     Dates: end: 201204

REACTIONS (12)
  - Hepatic enzyme increased [Recovered/Resolved]
  - Balance disorder [None]
  - Gait disturbance [None]
  - Injection site erythema [Not Recovered/Not Resolved]
  - Memory impairment [Not Recovered/Not Resolved]
  - Malaise [Not Recovered/Not Resolved]
  - Multiple sclerosis [None]
  - Muscular weakness [None]
  - Pain in extremity [None]
  - Headache [None]
  - Feeling hot [None]
  - Gait disturbance [None]
